FAERS Safety Report 7911464-0 (Version None)
Quarter: 2011Q4

REPORT INFORMATION
  Report Type: 
  Country: None (occurrence: None)
  Receive Date: 20111114
  Receipt Date: 20111104
  Transmission Date: 20120403
  Serious: Yes (Hospitalization)
  Sender: FDA-Public Use
  Company Number: US-BRISTOL-MYERS SQUIBB COMPANY-16215451

PATIENT
  Age: 85 Year
  Sex: Female
  Weight: 65 kg

DRUGS (1)
  1. WARFARIN SODIUM [Suspect]
     Dosage: 1.5MG: MONDAYS-THURSDAYS, 2MG: FRIDAYS-SUNDAYS. 1MG 60 PILLS
     Route: 048

REACTIONS (5)
  - SKIN DISCOLOURATION [None]
  - LACERATION [None]
  - LOSS OF CONSCIOUSNESS [None]
  - FALL [None]
  - INTERNATIONAL NORMALISED RATIO INCREASED [None]
